FAERS Safety Report 8909026 (Version 4)
Quarter: 2015Q1

REPORT INFORMATION
  Report Type: Report from Study
  Country: US (occurrence: US)
  Receive Date: 20121114
  Receipt Date: 20150323
  Transmission Date: 20150721
  Serious: Yes (Hospitalization)
  Sender: FDA-Public Use
  Company Number: US-ACTELION-A-NJ2012-74343

PATIENT
  Age: 74 Year
  Sex: Female

DRUGS (1)
  1. TRACLEER [Suspect]
     Active Substance: BOSENTAN\BOSENTAN MONOHYDRATE
     Indication: PULMONARY ARTERIAL HYPERTENSION
     Dosage: 125 MG, BID
     Route: 048
     Dates: start: 20120904

REACTIONS (6)
  - Haemorrhage [Unknown]
  - Sleep disorder [Unknown]
  - Renal failure [Recovering/Resolving]
  - Fluid retention [Recovering/Resolving]
  - Dialysis [Unknown]
  - Nausea [Unknown]

NARRATIVE: CASE EVENT DATE: 20121029
